FAERS Safety Report 19612963 (Version 2)
Quarter: 2021Q3

REPORT INFORMATION
  Report Type: Other
  Country: PL (occurrence: PL)
  Receive Date: 20210727
  Receipt Date: 20210915
  Transmission Date: 20211014
  Serious: Yes (Hospitalization, Other)
  Sender: FDA-Public Use
  Company Number: PL-RENATA LIMITED-2114296

PATIENT
  Age: 63 Year
  Sex: Female
  Weight: 70 kg

DRUGS (8)
  1. MOCLOBEMIDE [Suspect]
     Active Substance: MOCLOBEMIDE
     Route: 065
     Dates: start: 2018
  2. RISPERIDONE. [Suspect]
     Active Substance: RISPERIDONE
     Indication: PRODUCT USED FOR UNKNOWN INDICATION
     Route: 065
     Dates: start: 2014
  3. HYDROXYZINE [Concomitant]
     Active Substance: HYDROXYZINE HYDROCHLORIDE
     Route: 065
  4. BIPERIDEN [Concomitant]
     Active Substance: BIPERIDEN
     Route: 065
  5. TRAZODONE [Suspect]
     Active Substance: TRAZODONE HYDROCHLORIDE
     Route: 065
     Dates: start: 2018
  6. PERAZINE [Suspect]
     Active Substance: PERAZINE
     Route: 065
     Dates: start: 2018
  7. QUETIAPINE. [Suspect]
     Active Substance: QUETIAPINE
     Route: 065
  8. SULPIRIDE [Suspect]
     Active Substance: SULPIRIDE
     Route: 065

REACTIONS (3)
  - Toxicity to various agents [Unknown]
  - Tremor [Unknown]
  - Suicide attempt [Unknown]
